FAERS Safety Report 7713036-X (Version None)
Quarter: 2011Q3

REPORT INFORMATION
  Report Type: 
  Country: None (occurrence: None)
  Receive Date: 20110822
  Receipt Date: 20110805
  Transmission Date: 20111222
  Serious: Yes (Death, Other)
  Sender: FDA-Public Use
  Company Number: 2011MA011506

PATIENT
  Age: 22 Year
  Sex: Female

DRUGS (8)
  1. FUROSEMIDE [Concomitant]
  2. THC (NO PREF. NAME) [Suspect]
  3. METOCLOPRAMIDE [Suspect]
  4. PAREGORIC LIQUID USP (ALPHARMA) (PAREGORIC) [Suspect]
  5. METHADONE HCL [Suspect]
  6. ACETAMINOPHEN [Suspect]
  7. METHAMPHETAMINE HYDROCHLORIDE [Suspect]
  8. 3,4-METHYLENEDIOXYMETHAMPHETAMINE (NO PREF. NAME) [Suspect]

REACTIONS (4)
  - PULMONARY OEDEMA [None]
  - MYOCARDIAL ISCHAEMIA [None]
  - TOXICITY TO VARIOUS AGENTS [None]
  - HEPATITIS C [None]
